FAERS Safety Report 9217528 (Version 2)
Quarter: 2013Q2

REPORT INFORMATION
  Report Type: Spontaneous
  Country: BR (occurrence: BR)
  Receive Date: 20130408
  Receipt Date: 20130513
  Transmission Date: 20140414
  Serious: Yes (Hospitalization, Other)
  Sender: FDA-Public Use
  Company Number: BR-ASTRAZENECA-2013SE21237

PATIENT
  Age: 67 Year
  Sex: Male
  Weight: 94 kg

DRUGS (8)
  1. ATACAND [Suspect]
     Indication: HYPERTENSION
     Route: 048
     Dates: start: 2008
  2. SELOZOK [Suspect]
     Indication: ARRHYTHMIA
     Dosage: 25 DAILY
     Route: 048
     Dates: start: 201208, end: 201209
  3. SELOZOK [Suspect]
     Indication: ARRHYTHMIA
     Route: 048
     Dates: start: 201303
  4. XARELTO [Concomitant]
     Indication: THROMBOSIS PROPHYLAXIS
     Dosage: OD
     Dates: start: 201208
  5. MODURETIC [Concomitant]
     Indication: HYPERTENSION
     Dosage: OD
     Dates: start: 1983
  6. GALVUS MET [Concomitant]
     Indication: DIABETES MELLITUS
     Dosage: BID
     Dates: start: 2011
  7. RITMONORM [Concomitant]
     Indication: ARRHYTHMIA
     Dates: start: 201209, end: 201303
  8. UNKNOWN [Concomitant]
     Indication: DIABETES MELLITUS
     Dates: start: 1993, end: 2011

REACTIONS (6)
  - Coronary artery occlusion [Recovered/Resolved]
  - Diabetes mellitus inadequate control [Recovering/Resolving]
  - Abdominal distension [Recovered/Resolved]
  - Arrhythmia [Recovering/Resolving]
  - Nightmare [Recovered/Resolved]
  - Dyspnoea [Recovered/Resolved]
